FAERS Safety Report 9222653 (Version 2)
Quarter: 2013Q2

REPORT INFORMATION
  Report Type: Spontaneous
  Country: VE (occurrence: VE)
  Receive Date: 20130410
  Receipt Date: 20130419
  Transmission Date: 20140414
  Serious: Yes (Death, Other)
  Sender: FDA-Public Use
  Company Number: VE-PFIZER INC-2013112686

PATIENT
  Age: 70 Year
  Sex: 0

DRUGS (2)
  1. LIPITOR [Suspect]
     Indication: HYPERCHOLESTEROLAEMIA
     Dosage: 80 MG, 1X/DAY
     Route: 048
     Dates: start: 2010, end: 20121205
  2. LIPITOR [Suspect]
     Indication: CEREBROVASCULAR ACCIDENT

REACTIONS (3)
  - Cerebrovascular accident [Fatal]
  - Cerebrovascular accident [Recovered/Resolved]
  - Cerebrovascular accident [Recovered/Resolved]
